FAERS Safety Report 6862830-6 (Version None)
Quarter: 2010Q3

REPORT INFORMATION
  Report Type: 
  Country: None (occurrence: None)
  Receive Date: 20100721
  Receipt Date: 20100630
  Transmission Date: 20110219
  Serious: Yes (Hospitalization)
  Sender: FDA-Public Use
  Company Number: A0865412A

PATIENT
  Age: 55 Year
  Sex: Male

DRUGS (1)
  1. AVANDIA [Suspect]
     Dates: start: 20010601, end: 20060801

REACTIONS (4)
  - CARDIAC FUNCTION DISTURBANCE POSTOPERATIVE [None]
  - CORONARY ARTERY BYPASS [None]
  - PLEURAL EFFUSION [None]
  - PULMONARY EMBOLISM [None]
